FAERS Safety Report 6510031-3 (Version None)
Quarter: 2009Q4

REPORT INFORMATION
  Report Type: 
  Country: None (occurrence: None)
  Receive Date: 20091222
  Receipt Date: 20091214
  Transmission Date: 20100525
  Serious: Yes (Hospitalization)
  Sender: FDA-Public Use
  Company Number: DE-ROCHE-675670

PATIENT
  Sex: Female
  Weight: 48 kg

DRUGS (2)
  1. TRASTUZUMAB [Suspect]
     Route: 065
     Dates: start: 20090806, end: 20091112
  2. XELODA [Suspect]
     Route: 065
     Dates: start: 20091119, end: 20091121

REACTIONS (4)
  - GENERAL PHYSICAL HEALTH DETERIORATION [None]
  - MEMORY IMPAIRMENT [None]
  - NAUSEA [None]
  - VOMITING [None]
